FAERS Safety Report 8114610-1 (Version None)
Quarter: 2012Q1

REPORT INFORMATION
  Report Type: 
  Country: None (occurrence: None)
  Receive Date: 20120206
  Receipt Date: 20120131
  Transmission Date: 20120608
  Serious: Yes (Life-Threatening, Hospitalization)
  Sender: FDA-Public Use
  Company Number: FR-PFIZER INC-2012020063

PATIENT
  Age: 81 Year
  Sex: Female

DRUGS (11)
  1. CANDESARTAN CILEXETIL AND HYDROCHLOROTHIAZIDE [Suspect]
     Indication: CARDIAC FAILURE
  2. PREVISCAN [Suspect]
     Indication: ATRIAL FIBRILLATION
     Dosage: 10 MG, ALTERNATE DAY
     Route: 048
     Dates: start: 20110101, end: 20111123
  3. BISOPROLOL [Suspect]
     Dosage: 1 DF, 1X/DAY
     Route: 048
     Dates: start: 20110101, end: 20111123
  4. SITAGLIPTIN PHOSPHATE [Suspect]
     Dosage: 100 MG, 1X/DAY
     Route: 048
     Dates: start: 20110101, end: 20111123
  5. ALDACTONE [Suspect]
     Indication: CARDIAC FAILURE
     Dosage: 25 MG, 1X/DAY
     Route: 048
     Dates: start: 20110101, end: 20111114
  6. CANDESARTAN CILEXETIL AND HYDROCHLOROTHIAZIDE [Suspect]
     Indication: CARDIAC FAILURE CHRONIC
     Dosage: 16MG/12.5MG, 1 DF, 1X/DAY
     Dates: start: 20110101, end: 20111123
  7. LASIX [Concomitant]
     Dosage: 40 MG, UNK
     Dates: start: 20111114
  8. PREVISCAN [Suspect]
     Dosage: 5 MG, ALTERNATE DAY
     Route: 048
     Dates: start: 20110101, end: 20111123
  9. DOPAMINE [Concomitant]
     Dosage: UNK
     Dates: end: 20111127
  10. PANTOPRAZOLE SODIUM [Suspect]
     Dosage: 20 MG, 1X/DAY
     Route: 048
     Dates: start: 20110101, end: 20111123
  11. EZETIMIBE [Suspect]
     Dosage: 10 MG, 1X/DAY
     Route: 048
     Dates: start: 20110101, end: 20111123

REACTIONS (3)
  - HYPERKALAEMIA [None]
  - RENAL FAILURE ACUTE [None]
  - CIRCULATORY COLLAPSE [None]
